FAERS Safety Report 7943432-7 (Version None)
Quarter: 2011Q4

REPORT INFORMATION
  Report Type: 
  Country: None (occurrence: None)
  Receive Date: 20111128
  Receipt Date: 20111122
  Transmission Date: 20120403
  Serious: Yes (Disabling)
  Sender: FDA-Public Use
  Company Number: GB-TEVA-310560ISR

PATIENT
  Age: 78 Year
  Sex: Male
  Weight: 72.3 kg

DRUGS (2)
  1. NITROFURANTOIN [Suspect]
     Indication: URINARY TRACT INFECTION
     Route: 048
     Dates: start: 20110413, end: 20110420
  2. TIOPRONIN [Concomitant]

REACTIONS (2)
  - VISUAL FIELD DEFECT [None]
  - OPTIC NEURITIS [None]
